FAERS Safety Report 7485530-0 (Version None)
Quarter: 2011Q2

REPORT INFORMATION
  Report Type: 
  Country: None (occurrence: None)
  Receive Date: 20110517
  Receipt Date: 20110507
  Transmission Date: 20111010
  Serious: Yes (Death, Hospitalization, Other)
  Sender: FDA-Public Use
  Company Number: DE-ACTELION-A-CH2011-47788

PATIENT
  Sex: Male
  Weight: 85 kg

DRUGS (8)
  1. LISINOPRIL [Concomitant]
  2. BISOPROLOL FUMARATE [Concomitant]
  3. TRACLEER [Suspect]
     Indication: PULMONARY ARTERIAL HYPERTENSION
     Dosage: UNK
     Route: 048
     Dates: start: 20080101, end: 20110428
  4. PREDNISONE [Concomitant]
  5. DIGIMED [Concomitant]
  6. OXYGEN [Concomitant]
  7. REVATIO [Concomitant]
  8. MARCUMAR [Concomitant]

REACTIONS (18)
  - RIGHT VENTRICULAR FAILURE [None]
  - COR PULMONALE [None]
  - RESPIRATORY FAILURE [None]
  - GASTROENTERITIS [None]
  - DEHYDRATION [None]
  - UPPER GASTROINTESTINAL HAEMORRHAGE [None]
  - ALANINE AMINOTRANSFERASE INCREASED [None]
  - GASTRITIS [None]
  - TRANSFUSION [None]
  - LIVER FUNCTION TEST ABNORMAL [None]
  - CARDIAC FAILURE [None]
  - PULMONARY EMBOLISM [None]
  - ASPARTATE AMINOTRANSFERASE INCREASED [None]
  - CONCOMITANT DISEASE AGGRAVATED [None]
  - DEEP VEIN THROMBOSIS [None]
  - MECHANICAL VENTILATION [None]
  - GENERAL PHYSICAL HEALTH DETERIORATION [None]
  - ANAEMIA [None]
